FAERS Safety Report 25216303 (Version 1)
Quarter: 2025Q2

REPORT INFORMATION
  Report Type: Spontaneous
  Country: US (occurrence: US)
  Receive Date: 20250418
  Receipt Date: 20250418
  Transmission Date: 20250716
  Serious: No
  Sender: ROCHE
  Company Number: US-BoehringerIngelheim-2025-BI-019591

PATIENT
  Age: 43 Year
  Sex: Female

DRUGS (4)
  1. ALTEPLASE [Suspect]
     Active Substance: ALTEPLASE
     Indication: Prosthetic cardiac valve obstruction
     Dosage: 25 MG ALTEPLASE OVER 6 HOURS
     Route: 042
  2. ALTEPLASE [Suspect]
     Active Substance: ALTEPLASE
     Dosage: 25 MG OVER 25 HOURS
     Route: 042
  3. BIVALIRUDIN [Concomitant]
     Active Substance: BIVALIRUDIN
     Indication: Anticoagulant therapy
     Dosage: 1.75 MG/KG/H
  4. WARFARIN [Concomitant]
     Active Substance: WARFARIN

REACTIONS (3)
  - Headache [Unknown]
  - Nausea [Unknown]
  - Off label use [Unknown]
